FAERS Safety Report 6687582-4 (Version None)
Quarter: 2010Q2

REPORT INFORMATION
  Report Type: 
  Country: None (occurrence: None)
  Receive Date: 20100416
  Receipt Date: 20100416
  Transmission Date: 20101027
  Serious: Yes (Other)
  Sender: FDA-Public Use
  Company Number: None

PATIENT
  Age: 70 Year
  Sex: Female
  Weight: 113.8529 kg

DRUGS (1)
  1. DEPAKOTE ER [Suspect]
     Indication: MIGRAINE PROPHYLAXIS
     Dosage: 500MG DAILY PO
     Route: 048
     Dates: start: 20100215, end: 20100216

REACTIONS (1)
  - NAUSEA [None]
